FAERS Safety Report 6717942-4 (Version None)
Quarter: 2010Q2

REPORT INFORMATION
  Report Type: 
  Country: None (occurrence: None)
  Receive Date: 20100510
  Receipt Date: 20100427
  Transmission Date: 20101027
  Serious: Yes (Other)
  Sender: FDA-Public Use
  Company Number: PHHY2010US27594

PATIENT
  Sex: Male

DRUGS (6)
  1. EXELON [Suspect]
     Dosage: UNK,UNK
     Route: 062
  2. NAMENDA [Concomitant]
     Dosage: 10 MG, BID (ONE AT 8 AM AND ANOTHER AT 6 PM)
  3. ENABLEX [Concomitant]
     Dosage: 15 MG, QD
  4. SIMVASTATIN [Concomitant]
     Dosage: 80 MG, QD
  5. LISINOPRIL [Concomitant]
     Dosage: UNK,ONCE DAILY
  6. HYDROCHLOROTHIAZIDE [Concomitant]
     Dosage: UNK,ONCE DAILY

REACTIONS (3)
  - FALL [None]
  - HYPOAESTHESIA [None]
  - JOINT INJURY [None]
